FAERS Safety Report 23437071 (Version 1)
Quarter: 2024Q1

REPORT INFORMATION
  Report Type: Other
  Country: IL (occurrence: None)
  Receive Date: 20240124
  Receipt Date: 20240124
  Transmission Date: 20240410
  Serious: Yes (Other)
  Sender: FDA-Public Use
  Company Number: IL-ROCHE-3492068

PATIENT
  Sex: Female

DRUGS (1)
  1. OCREVUS [Suspect]
     Active Substance: OCRELIZUMAB
     Indication: Product used for unknown indication
     Dosage: LAST TREATMENT 3/JULY/2023
     Route: 042
     Dates: start: 20211122

REACTIONS (2)
  - Maternal exposure before pregnancy [Unknown]
  - COVID-19 [Unknown]
